FAERS Safety Report 8992719 (Version 1)
Quarter: 2013Q1

REPORT INFORMATION
  Report Type: Spontaneous
  Country: HU (occurrence: HU)
  Receive Date: 20130101
  Receipt Date: 20130101
  Transmission Date: 20140127
  Serious: Yes (Life-Threatening, Hospitalization, Other)
  Sender: FDA-Public Use
  Company Number: HU-ROCHE-1175690

PATIENT
  Age: 65 Year
  Sex: Male

DRUGS (2)
  1. ACTILYSE [Suspect]
     Indication: INTRACARDIAC THROMBUS
     Route: 042
     Dates: start: 20110209, end: 20110209
  2. AMLODIPINE [Concomitant]
     Indication: HYPERTENSION
     Route: 065
     Dates: start: 2000

REACTIONS (4)
  - Toxic skin eruption [Recovered/Resolved]
  - Hypotension [Recovered/Resolved]
  - Pallor [Recovered/Resolved]
  - Abdominal pain [Recovered/Resolved]
